FAERS Safety Report 26043014 (Version 1)
Quarter: 2025Q4

REPORT INFORMATION
  Report Type: Spontaneous
  Country: US (occurrence: US)
  Receive Date: 20251113
  Receipt Date: 20251113
  Transmission Date: 20260117
  Serious: No
  Sender: ANI
  Company Number: US-ANIPHARMA-2025-US-045948

PATIENT
  Age: 40 Year
  Sex: Male
  Weight: 86.18 kg

DRUGS (9)
  1. KRYSTEXXA 8 MG/ML VIAL [Concomitant]
  2. EMERGEN-C 1000 MG EFFPOWDPKT [Concomitant]
  3. VITAMIN D-400 [Concomitant]
  4. VITAMIN B12 [Concomitant]
     Active Substance: CYANOCOBALAMIN
  5. PREDNISONE [Concomitant]
     Active Substance: PREDNISONE
  6. COLCHICINE [Concomitant]
     Active Substance: COLCHICINE
  7. IBUPROFEN [Concomitant]
     Active Substance: IBUPROFEN
  8. TRAMADOL HCL [Concomitant]
     Active Substance: TRAMADOL HYDROCHLORIDE
  9. CORTICOTROPIN [Suspect]
     Active Substance: CORTICOTROPIN
     Indication: Gout
     Dosage: 1 PFS INJECT UNDER THE SKIN TWICE A WEEK
     Route: 058

REACTIONS (1)
  - Gout [Unknown]

NARRATIVE: CASE EVENT DATE: 20250930
